FAERS Safety Report 7226301-X (Version None)
Quarter: 2011Q1

REPORT INFORMATION
  Report Type: 
  Country: None (occurrence: None)
  Receive Date: 20110114
  Receipt Date: 20110106
  Transmission Date: 20110831
  Serious: Yes (Hospitalization)
  Sender: FDA-Public Use
  Company Number: PHHO2010DE19281

PATIENT
  Sex: Female
  Weight: 66 kg

DRUGS (4)
  1. KEPPRA [Concomitant]
     Indication: EPILEPSY
  2. NEBIVOLOL [Concomitant]
     Indication: HYPERTENSION
  3. DIOVAN [Concomitant]
     Indication: HYPERTENSION
  4. FTY 720 [Suspect]
     Indication: MULTIPLE SCLEROSIS
     Dosage: 0.5MG DAILY
     Route: 048
     Dates: start: 20100920, end: 20101220

REACTIONS (6)
  - BRAIN MASS [None]
  - CENTRAL NERVOUS SYSTEM LESION [None]
  - CEREBRAL TOXOPLASMOSIS [None]
  - APHASIA [None]
  - EPSTEIN-BARR VIRUS INFECTION [None]
  - HEMIPARESIS [None]
